FAERS Safety Report 5766153-8 (Version None)
Quarter: 2008Q2

REPORT INFORMATION
  Report Type: 
  Country: None (occurrence: None)
  Receive Date: 20080611
  Receipt Date: 20080530
  Transmission Date: 20081010
  Serious: Yes (Other)
  Sender: FDA-Public Use
  Company Number: TR-PFIZER INC-2008047045

PATIENT
  Age: 17 Year
  Sex: Female

DRUGS (9)
  1. IDARUBICIN HCL [Suspect]
     Indication: ACUTE MONOCYTIC LEUKAEMIA
     Dosage: DAILY DOSE:36MG/M2
  2. IDARUBICIN HCL [Suspect]
     Dosage: TEXT:3 G/M2/DAY-FREQ:TWO TIMES
  3. CYTARABINE [Suspect]
     Indication: ACUTE MONOCYTIC LEUKAEMIA
     Dosage: TEXT:1.4 G/M2
  4. CYTARABINE [Suspect]
     Dosage: TEXT:18 G/M2
  5. CYTARABINE [Suspect]
     Dosage: TEXT:2 G/M2-FREQ:CONSECUTIVELY FOR 4 DAYS
  6. CYTARABINE [Suspect]
     Dosage: TEXT:6 G/M2
  7. ETOPOSIDE [Suspect]
     Indication: ACUTE MONOCYTIC LEUKAEMIA
     Dosage: DAILY DOSE:450MG/M2
  8. ETOPOSIDE [Suspect]
     Dosage: DAILY DOSE:500MG/M2
  9. MITOXANTRONE [Suspect]
     Indication: ACUTE MONOCYTIC LEUKAEMIA
     Dosage: DAILY DOSE:20MG/M2

REACTIONS (2)
  - BURNING SENSATION [None]
  - PALMAR ERYTHEMA [None]
